FAERS Safety Report 7744373-0 (Version None)
Quarter: 2011Q3

REPORT INFORMATION
  Report Type: 
  Country: None (occurrence: None)
  Receive Date: 20110912
  Receipt Date: 20110907
  Transmission Date: 20111222
  Serious: Yes (Hospitalization, Other)
  Sender: FDA-Public Use
  Company Number: JP-PFIZER INC-2011192789

PATIENT
  Age: 62 Year
  Sex: Female
  Weight: 64 kg

DRUGS (4)
  1. MEILAX [Concomitant]
     Indication: DIZZINESS
     Dosage: 1 TABLET/DAY
     Route: 048
     Dates: start: 20070101
  2. LYRICA [Suspect]
     Indication: NEURALGIA
     Dosage: 75 MG, 1X/DAY
     Route: 048
     Dates: start: 20110630, end: 20110701
  3. NEUROTROPIN [Concomitant]
     Indication: NEURALGIA
     Dosage: 4 TABLETS/DAY
     Route: 048
     Dates: start: 20050101
  4. LOXONIN [Concomitant]
     Indication: NECK PAIN
     Dosage: 60 MG, 3X/DAY
     Route: 048
     Dates: start: 20040101

REACTIONS (5)
  - WHITE BLOOD CELL COUNT INCREASED [None]
  - PYREXIA [None]
  - PLATELET COUNT DECREASED [None]
  - HEPATIC FUNCTION ABNORMAL [None]
  - MALAISE [None]
